FAERS Safety Report 6716230-X (Version None)
Quarter: 2010Q2

REPORT INFORMATION
  Report Type: 
  Country: None (occurrence: None)
  Receive Date: 20100507
  Receipt Date: 20100429
  Transmission Date: 20101027
  Serious: Yes (Other)
  Sender: FDA-Public Use
  Company Number: IE-ABBOTT-10P-229-0634062-00

PATIENT
  Weight: 68 kg

DRUGS (3)
  1. HUMIRA [Suspect]
     Indication: CROHN'S DISEASE
     Route: 058
     Dates: start: 20080901, end: 20100317
  2. SALAZOPYRIN [Concomitant]
     Indication: CROHN'S DISEASE
     Dosage: 2 G DAILY
     Route: 048
     Dates: start: 20080901
  3. UNKNOWN STEROID [Concomitant]
     Indication: DRUG USE FOR UNKNOWN INDICATION
     Dosage: DOSE REDUCED

REACTIONS (2)
  - MOUTH ULCERATION [None]
  - STOMATITIS [None]
